FAERS Safety Report 8005448-4 (Version None)
Quarter: 2011Q4

REPORT INFORMATION
  Report Type: 
  Country: None (occurrence: None)
  Receive Date: 20111223
  Receipt Date: 20111220
  Transmission Date: 20120403
  Serious: Yes (Life-Threatening, Hospitalization)
  Sender: FDA-Public Use
  Company Number: US-JNJFOC-20111209829

PATIENT
  Sex: Female

DRUGS (4)
  1. ORAL CONTRACEPTIVE NOS [Suspect]
     Indication: PRODUCT USED FOR UNKNOWN INDICATION
     Route: 048
  2. ZYRTEC [Suspect]
     Route: 048
  3. COPAXONE [Suspect]
     Indication: MULTIPLE SCLEROSIS
     Dosage: FOR 9 MONTHS
     Route: 058
  4. ZYRTEC [Suspect]
     Indication: PRODUCT USED FOR UNKNOWN INDICATION
     Route: 048

REACTIONS (1)
  - LIVER DISORDER [None]
